FAERS Safety Report 19472399 (Version 1)
Quarter: 2021Q2

REPORT INFORMATION
  Report Type: Other
  Country: US (occurrence: US)
  Receive Date: 20210629
  Receipt Date: 20210629
  Transmission Date: 20210717
  Serious: Yes (Other)
  Sender: FDA-Public Use
  Company Number: US-INTERCEPT-PM2021002053

PATIENT
  Age: 46 Year
  Sex: Female

DRUGS (11)
  1. VITAMIN D [COLECALCIFEROL] [Concomitant]
     Active Substance: CHOLECALCIFEROL
     Dosage: 5000 INTERNATIONAL UNIT, QD
     Route: 048
  2. CALCIUM CARBONATE. [Concomitant]
     Active Substance: CALCIUM CARBONATE
  3. OCALIVA [Suspect]
     Active Substance: OBETICHOLIC ACID
     Dosage: 10 MILLIGRAM, QD
     Route: 048
     Dates: start: 202011, end: 2020
  4. OCALIVA [Suspect]
     Active Substance: OBETICHOLIC ACID
     Dosage: 5 MILLIGRAM, QD
     Route: 048
     Dates: start: 2020
  5. OCALIVA [Suspect]
     Active Substance: OBETICHOLIC ACID
     Dosage: 10 MILLIGRAM, QD
     Route: 048
  6. VITAMIN C [Concomitant]
     Active Substance: ASCORBIC ACID
     Dosage: 1000 MILLIGRAM, QD
     Route: 048
  7. CAL MAG [CALCIUM CARBONATE;MAGNESIUM] [Concomitant]
     Dosage: UNK MILLIGRAM
  8. OCALIVA [Suspect]
     Active Substance: OBETICHOLIC ACID
     Indication: PRIMARY BILIARY CHOLANGITIS
     Dosage: 5 MILLIGRAM, QD
     Route: 048
     Dates: start: 20190409, end: 20190409
  9. OCALIVA [Suspect]
     Active Substance: OBETICHOLIC ACID
     Dosage: 10 MILLIGRAM, QD
     Route: 048
     Dates: start: 202006, end: 20201106
  10. URSODIOL. [Concomitant]
     Active Substance: URSODIOL
     Dosage: 250 MILLIGRAM, 5 TABS QD
     Route: 048
     Dates: start: 201112
  11. VITAMIN D3 [Concomitant]
     Active Substance: CHOLECALCIFEROL
     Dosage: 2500 INTERNATIONAL UNIT, QD

REACTIONS (14)
  - Hepatic cirrhosis [Unknown]
  - Renal neoplasm [Unknown]
  - Intraductal papillary mucinous neoplasm [Unknown]
  - Granuloma [Unknown]
  - Portal tract inflammation [Unknown]
  - Fatigue [Unknown]
  - Hepatic enzyme abnormal [Unknown]
  - Nephrolithiasis [Unknown]
  - Lipoma [Unknown]
  - Pruritus [Unknown]
  - Pancreatic cyst [Unknown]
  - Cholestasis [Unknown]
  - Osteopenia [Unknown]
  - Abdominal pain upper [Unknown]

NARRATIVE: CASE EVENT DATE: 20190516
